FAERS Safety Report 7988636-2 (Version None)
Quarter: 2011Q4

REPORT INFORMATION
  Report Type: 
  Country: None (occurrence: None)
  Receive Date: 20111218
  Receipt Date: 20030717
  Transmission Date: 20120403
  Serious: Yes (Death, Hospitalization)
  Sender: FDA-Public Use
  Company Number: PHHY2003BE005099

PATIENT
  Age: 89 Year
  Sex: Male

DRUGS (5)
  1. THALIDOMIDE [Concomitant]
  2. ALKERAN [Concomitant]
  3. MEDROL [Concomitant]
  4. DEXAMETHASONE [Concomitant]
  5. AREDIA [Suspect]
     Indication: HYPERCALCAEMIA OF MALIGNANCY

REACTIONS (2)
  - RENAL IMPAIRMENT [None]
  - PROTEINURIA [None]
